FAERS Safety Report 7892701-8 (Version None)
Quarter: 2011Q4

REPORT INFORMATION
  Report Type: 
  Country: None (occurrence: None)
  Receive Date: 20111102
  Receipt Date: 20110930
  Transmission Date: 20120403
  Serious: Yes (Hospitalization)
  Sender: FDA-Public Use
  Company Number: 2011234693

PATIENT
  Age: 53 Year
  Sex: Male

DRUGS (14)
  1. CYTARABINE [Suspect]
     Dosage: 100 MG, INTRATHECAL
     Route: 037
     Dates: start: 20100601
  2. METHOTREXATE SODIUM [Suspect]
     Dosage: INTRATHECAL
     Route: 037
     Dates: start: 20100601
  3. GEMTUZUMAB OZOGAMICIN (GEMTUZUMAB OZOGAMICIN) UNKNOWN [Suspect]
     Indication: ACUTE LEUKAEMIA
     Dosage: 6 MG/M2, 1X/DAY, INTRAVENOUS ; 6 MG/M2 ONCE A DAY, INTRAVENOUS
     Route: 042
     Dates: start: 20100607, end: 20100607
  4. GEMTUZUMAB OZOGAMICIN (GEMTUZUMAB OZOGAMICIN) UNKNOWN [Suspect]
     Indication: ACUTE LEUKAEMIA
     Dosage: 6 MG/M2, 1X/DAY, INTRAVENOUS ; 6 MG/M2 ONCE A DAY, INTRAVENOUS
     Route: 042
     Dates: start: 20100820, end: 20110820
  5. MITOXANTRONE [Suspect]
     Dosage: 12 MG/M2, 1X/DAY, INTRAVENOUS
     Route: 042
     Dates: start: 20100817, end: 20100818
  6. PREDNISOLONE [Suspect]
     Dosage: INTRATHECAL
     Route: 037
     Dates: start: 20100601
  7. LERCANIDIPINE [Concomitant]
  8. CYTARABINE [Suspect]
     Indication: LEUKAEMIA
     Dosage: 1000 MG/KG; 50 MG/M2, INTRAVENOUS ; 200 MG/M2, 1X/DAY, INTRAVENOUS,
     Route: 042
     Dates: start: 20100720, end: 20100726
  9. CYTARABINE [Suspect]
     Indication: LEUKAEMIA
     Dosage: 1000 MG/KG; 50 MG/M2, INTRAVENOUS ; 200 MG/M2, 1X/DAY, INTRAVENOUS,
     Route: 042
     Dates: start: 20100817, end: 20100822
  10. CYTARABINE [Suspect]
     Indication: LEUKAEMIA
     Dosage: 1000 MG/KG; 50 MG/M2, INTRAVENOUS ; 200 MG/M2, 1X/DAY, INTRAVENOUS,
     Route: 042
     Dates: start: 20100604, end: 20100610
  11. CYTARABINE [Suspect]
     Indication: LEUKAEMIA
     Dosage: 1000 MG/KG; 50 MG/M2, INTRAVENOUS ; 200 MG/M2, 1X/DAY, INTRAVENOUS,
     Route: 042
     Dates: start: 20100601
  12. MICARDIS [Concomitant]
  13. CERUBIDINE [Suspect]
     Indication: ACUTE LEUKAEMIA
     Dosage: 60 MG/M2, 1X/DAY, INTRAVENOUS ; INTRAVENOUS
     Route: 042
     Dates: start: 20100720, end: 20100721
  14. CERUBIDINE [Suspect]
     Indication: ACUTE LEUKAEMIA
     Dosage: 60 MG/M2, 1X/DAY, INTRAVENOUS ; INTRAVENOUS
     Route: 042
     Dates: start: 20100604, end: 20100606

REACTIONS (7)
  - LYME DISEASE [None]
  - CRANIAL NERVE DISORDER [None]
  - PARALYSIS [None]
  - PERIPHERAL SENSORY NEUROPATHY [None]
  - VIITH NERVE PARALYSIS [None]
  - PARAESTHESIA ORAL [None]
  - THROMBOCYTOPENIA [None]
